FAERS Safety Report 6930085-X (Version None)
Quarter: 2010Q3

REPORT INFORMATION
  Report Type: 
  Country: None (occurrence: None)
  Receive Date: 20100818
  Receipt Date: 20100812
  Transmission Date: 20110219
  Serious: Yes (Other)
  Sender: FDA-Public Use
  Company Number: US-BAYER-201030524NA

PATIENT
  Age: 35 Year
  Sex: Female

DRUGS (2)
  1. AVELOX [Suspect]
     Indication: SINUSITIS
     Dosage: AS USED: 400 MG  UNIT DOSE: 400 MG
     Route: 048
     Dates: start: 20100701, end: 20100803
  2. BYSTOLIC [Concomitant]

REACTIONS (7)
  - ANAPHYLACTIC SHOCK [None]
  - LIP SWELLING [None]
  - LOSS OF CONSCIOUSNESS [None]
  - NAUSEA [None]
  - PARAESTHESIA [None]
  - PHARYNGEAL OEDEMA [None]
  - VOMITING [None]
